FAERS Safety Report 7111572-0 (Version None)
Quarter: 2010Q4

REPORT INFORMATION
  Report Type: 
  Country: None (occurrence: None)
  Receive Date: 20101118
  Receipt Date: 20101115
  Transmission Date: 20110411
  Serious: Yes (Other)
  Sender: FDA-Public Use
  Company Number: US-PFIZER INC-2010148622

PATIENT
  Sex: Female
  Weight: 79.365 kg

DRUGS (1)
  1. XALATAN [Suspect]
     Indication: GLAUCOMA
     Dosage: 1 DROP IN EACH EYE
     Dates: start: 20000101

REACTIONS (3)
  - DARK CIRCLES UNDER EYES [None]
  - HYPERTENSION [None]
  - HYPOTHYROIDISM [None]
